FAERS Safety Report 8764331 (Version 2)
Quarter: 2012Q4

REPORT INFORMATION
  Report Type: 
  Country: CA (occurrence: CA)
  Receive Date: 20120831
  Receipt Date: 20120831
  Transmission Date: 20130627
  Serious: Yes (Other)
  Sender: FDA-Public Use
  Company Number: PHHO2005CA05914

PATIENT
  Sex: Male

DRUGS (3)
  1. SANDOSTATIN LAR (PATIENT BASIS) [Suspect]
     Indication: CARCINOID TUMOUR
     Dosage: 30 mg, QW2
     Dates: start: 200007
  2. SANDOSTATIN LAR (PATIENT BASIS) [Suspect]
     Dosage: 500 mcg, every 4 weeks
     Route: 058
     Dates: start: 20080610
  3. SIMVASTATIN [Concomitant]
     Dosage: 20 mg, die

REACTIONS (2)
  - Full blood count decreased [Unknown]
  - 5-hydroxyindolacetic acid in urine decreased [Unknown]
